FAERS Safety Report 4816273-7 (Version None)
Quarter: 2005Q4

REPORT INFORMATION
  Report Type: 
  Country: None (occurrence: None)
  Receive Date: 20051028
  Receipt Date: 20051014
  Transmission Date: 20060501
  Serious: Yes (Life-Threatening, Hospitalization)
  Sender: FDA-Public Use
  Company Number: US016198

PATIENT
  Age: 68 Year
  Sex: Male

DRUGS (1)
  1. TRISENOX [Suspect]
     Indication: MYELODYSPLASTIC SYNDROME

REACTIONS (11)
  - COUGH [None]
  - CREPITATIONS [None]
  - DYSPNOEA EXERTIONAL [None]
  - HAEMOGLOBIN DECREASED [None]
  - LEUKOPENIA [None]
  - OEDEMA PERIPHERAL [None]
  - PETECHIAE [None]
  - PITTING OEDEMA [None]
  - PLATELET COUNT DECREASED [None]
  - PLEURAL EFFUSION [None]
  - WEIGHT DECREASED [None]
